FAERS Safety Report 15707993 (Version 2)
Quarter: 2019Q2

REPORT INFORMATION
  Report Type: Spontaneous
  Country: US (occurrence: US)
  Receive Date: 20181211
  Receipt Date: 20190521
  Transmission Date: 20190711
  Serious: No
  Sender: FDA-Public Use
  Company Number: US-HTU-2018US017624

PATIENT
  Sex: Female

DRUGS (2)
  1. VALCHLOR [Suspect]
     Active Substance: MECHLORETHAMINE
     Dosage: THIN FILM TO AFFECTED SKIN, DAILY
     Route: 061
  2. VALCHLOR [Suspect]
     Active Substance: MECHLORETHAMINE
     Indication: CUTANEOUS T-CELL LYMPHOMA
     Dosage: UNK
     Route: 061
     Dates: start: 20180907

REACTIONS (9)
  - Condition aggravated [Unknown]
  - Pain of skin [Unknown]
  - Unevaluable event [Unknown]
  - Erythema [Unknown]
  - Blister [Unknown]
  - Skin irritation [Unknown]
  - Product dose omission [Unknown]
  - Pruritus [Unknown]
  - Eye pain [Unknown]
